FAERS Safety Report 18866771 (Version 2)
Quarter: 2021Q2

REPORT INFORMATION
  Report Type: Spontaneous
  Country: US (occurrence: US)
  Receive Date: 20210208
  Receipt Date: 20210409
  Transmission Date: 20210717
  Serious: Yes (Hospitalization, Other)
  Sender: FDA-Public Use
  Company Number: US-B.I. PHARMACEUTICALS,INC./RIDGEFIELD-2021-BI-080558

PATIENT
  Age: 60 Year
  Sex: Male

DRUGS (2)
  1. SPIRIVA RESPIMAT [Suspect]
     Active Substance: TIOTROPIUM BROMIDE
     Indication: CHRONIC OBSTRUCTIVE PULMONARY DISEASE
     Dosage: 2 PUFFS ONCE A DAY
     Dates: start: 2019
  2. OXYGEN. [Concomitant]
     Active Substance: OXYGEN
     Indication: THORACIC CAVITY DRAINAGE

REACTIONS (7)
  - Illness [Unknown]
  - Cardiac failure congestive [Recovered/Resolved]
  - Peripheral swelling [Recovered/Resolved]
  - Dyspnoea [Not Recovered/Not Resolved]
  - Abdominal distension [Recovered/Resolved]
  - Oxygen saturation decreased [Recovered/Resolved]
  - Weight fluctuation [Recovered/Resolved]

NARRATIVE: CASE EVENT DATE: 20200209
